FAERS Safety Report 8853926 (Version 2)
Quarter: 2012Q4

REPORT INFORMATION
  Report Type: 
  Country: US (occurrence: US)
  Receive Date: 20121022
  Receipt Date: 20121112
  Transmission Date: 20130627
  Serious: Yes (Hospitalization, Other)
  Sender: FDA-Public Use
  Company Number: PHEH2012US018529

PATIENT
  Sex: Female
  Weight: 111.9 kg

DRUGS (31)
  1. GLEEVEC [Suspect]
     Indication: CHRONIC MYELOID LEUKAEMIA
     Dosage: 400 mg
     Route: 048
  2. GLEEVEC [Suspect]
     Dosage: 800 mg, daily
     Route: 048
     Dates: start: 20111102
  3. GLEEVEC [Suspect]
     Dosage: 800 mg, daily
     Route: 048
     Dates: start: 20120620
  4. METOPROLOL [Concomitant]
     Dosage: 100 mg, daily
  5. POTASSIUM [Concomitant]
     Indication: MINERAL SUPPLEMENTATION
     Dosage: 40 mg, BID
  6. CYMBALTA [Concomitant]
     Indication: DEPRESSION
     Dosage: 60 mg, daily
  7. DIAZEPAM [Concomitant]
     Indication: ANXIETY
     Dosage: 10 mg, QD
     Route: 048
  8. ASPIRIN [Concomitant]
     Dosage: 81 mg, QD
     Route: 048
     Dates: start: 20120919
  9. FENOFIBRATE [Concomitant]
     Dosage: 145 mg, QD
     Dates: start: 20120919
  10. LASIX [Concomitant]
     Dosage: 40 mg, BID
     Route: 048
     Dates: start: 20120919
  11. LASIX [Concomitant]
     Dosage: 60 mg, UNK
     Route: 048
  12. HUMULIN [Concomitant]
     Dosage: As directed
  13. PRILOSEC [Concomitant]
     Dosage: 40 mg, QD
     Route: 048
  14. CARVEDILOL [Concomitant]
     Dosage: 12.5 mg, BID
     Route: 048
     Dates: start: 20120919
  15. DULOXETINE [Concomitant]
     Dosage: 60 mg, daily
     Route: 048
     Dates: start: 20120919
  16. ENOXAPARIN [Concomitant]
     Dosage: 40 mg, daily
     Route: 058
     Dates: start: 20120919
  17. INSULIN NPH [Concomitant]
     Dosage: 34 U, UNK
     Route: 058
     Dates: start: 20120919
  18. INSULIN NPH [Concomitant]
     Dosage: 30 U, UNK
     Route: 058
  19. PANTOPRAZOLE [Concomitant]
     Dosage: 40 mg, daily
     Route: 048
     Dates: start: 20120919
  20. POTASSIUM CHLORIDE [Concomitant]
     Dosage: 20 MEq, BID
     Route: 048
     Dates: start: 20120919
  21. ACETAMINOPHEN [Concomitant]
     Dosage: 650 mg, Q4H
     Route: 048
     Dates: start: 20120920, end: 20120921
  22. ALBUTEROL [Concomitant]
     Dosage: 4 Times daily (2 Puff)
     Dates: start: 20120920, end: 20120921
  23. INSULIN LISPRO [Concomitant]
     Dosage: 3 DF, UNK
     Route: 058
     Dates: start: 20120920, end: 20120921
  24. MORPHINE [Concomitant]
     Dosage: 2 mg, Q4H
     Route: 042
     Dates: start: 20120920, end: 20120921
  25. NITROGLYCERIN [Concomitant]
     Dosage: 0.4 mg, UNK
     Route: 060
     Dates: start: 20120920, end: 20120921
  26. PROCHLORPERAZINE [Concomitant]
     Dosage: 10 mg, BID
     Route: 048
     Dates: start: 20120920, end: 20120921
  27. FUROSEMIDE [Concomitant]
     Dosage: 40 mg, BID
     Route: 048
     Dates: start: 20120919
  28. COREG [Concomitant]
     Dosage: 25 mg, BID
     Route: 048
  29. ZELIAN [Concomitant]
     Dosage: 10 mg, QD
     Route: 048
  30. TRICOR [Concomitant]
     Dosage: 145 mg, QD
     Route: 048
  31. RAMIPRIL [Concomitant]
     Dosage: 5 mg, QD

REACTIONS (19)
  - Chest pain [Recovered/Resolved]
  - Blood triglycerides increased [Unknown]
  - Diastolic dysfunction [Unknown]
  - Ejection fraction decreased [Unknown]
  - Dilatation ventricular [Unknown]
  - Mitral valve incompetence [Unknown]
  - Left atrial dilatation [Unknown]
  - Blood glucose increased [Unknown]
  - Renal failure [Unknown]
  - Obesity [Unknown]
  - Orthopnoea [Unknown]
  - Feeling abnormal [Unknown]
  - Anaemia [Unknown]
  - Pain in extremity [Unknown]
  - Oedema peripheral [Recovering/Resolving]
  - No therapeutic response [Unknown]
  - Diarrhoea [Not Recovered/Not Resolved]
  - Discomfort [Unknown]
  - Face oedema [Unknown]
